FAERS Safety Report 19225250 (Version 1)
Quarter: 2021Q2

REPORT INFORMATION
  Report Type: Spontaneous
  Country: CN (occurrence: CN)
  Receive Date: 20210505
  Receipt Date: 20210505
  Transmission Date: 20210717
  Serious: Yes (Hospitalization)
  Sender: FDA-Public Use
  Company Number: CN-ELI_LILLY_AND_COMPANY-CN202104012574

PATIENT
  Age: 77 Year
  Sex: Male

DRUGS (1)
  1. HUMALOG MIX75/25 [Suspect]
     Active Substance: INSULIN LISPRO
     Indication: DIABETES MELLITUS
     Dosage: UNK UNK, UNKNOWN
     Route: 065

REACTIONS (8)
  - Road traffic accident [Unknown]
  - Eye disorder [Unknown]
  - Eye injury [Unknown]
  - Cerebral disorder [Unknown]
  - Brain injury [Unknown]
  - Headache [Unknown]
  - Product dose omission issue [Unknown]
  - Multiple fractures [Unknown]
